FAERS Safety Report 13084767 (Version 1)
Quarter: 2017Q1

REPORT INFORMATION
  Report Type: Spontaneous
  Country: US (occurrence: US)
  Receive Date: 20170103
  Receipt Date: 20170103
  Transmission Date: 20170428
  Serious: No
  Sender: FDA-Public Use
  Company Number: None

PATIENT
  Sex: Female

DRUGS (2)
  1. LEUCOVORIN CALCIUM 350MG/ML TEVA PHARMACEUTICALS [Suspect]
     Active Substance: LEUCOVORIN CALCIUM
     Indication: GASTRIC CANCER
     Route: 042
     Dates: start: 20160928
  2. OXALIPLATIN 100MG/20ML TEVA PHARMACEUTICALS [Suspect]
     Active Substance: OXALIPLATIN
     Indication: GASTRIC CANCER
     Route: 042
     Dates: start: 20160928

REACTIONS (2)
  - Therapy cessation [None]
  - Hypersensitivity [None]
